FAERS Safety Report 8509114-8 (Version None)
Quarter: 2012Q3

REPORT INFORMATION
  Report Type: 
  Country: None (occurrence: None)
  Receive Date: 20120713
  Receipt Date: 20120709
  Transmission Date: 20120928
  Serious: Yes (Hospitalization)
  Sender: FDA-Public Use
  Company Number: US-GLAXOSMITHKLINE-A0875797A

PATIENT
  Age: 51 Year
  Sex: Female
  Weight: 95.9 kg

DRUGS (1)
  1. AVANDIA [Suspect]
     Indication: DIABETES MELLITUS
     Dosage: 8MG PER DAY
     Route: 048
     Dates: start: 20001025, end: 20030619

REACTIONS (5)
  - SUPRAVENTRICULAR TACHYCARDIA [None]
  - ISCHAEMIC CARDIOMYOPATHY [None]
  - HEART RATE INCREASED [None]
  - CARDIAC FAILURE CONGESTIVE [None]
  - CARDIAC ASSISTANCE DEVICE USER [None]
